FAERS Safety Report 8507291-6 (Version None)
Quarter: 2012Q3

REPORT INFORMATION
  Report Type: 
  Country: None (occurrence: None)
  Receive Date: 20120712
  Receipt Date: 20120628
  Transmission Date: 20120928
  Serious: Yes (Hospitalization, Other)
  Sender: FDA-Public Use
  Company Number: JP-ROCHE-714781

PATIENT
  Sex: Female
  Weight: 59 kg

DRUGS (17)
  1. ACTEMRA [Suspect]
     Route: 041
     Dates: start: 20090327, end: 20090327
  2. FOLIAMIN [Concomitant]
     Route: 048
     Dates: start: 20071128, end: 20100514
  3. EPINASTINE HYDROCHLORIDE [Concomitant]
     Route: 048
     Dates: start: 20090527, end: 20100521
  4. ACTEMRA [Suspect]
     Route: 041
     Dates: start: 20090422, end: 20090422
  5. ACTEMRA [Suspect]
     Route: 041
     Dates: start: 20090527, end: 20090527
  6. GLAKAY [Concomitant]
     Route: 048
  7. PROGRAF [Concomitant]
     Route: 048
     Dates: start: 20080509, end: 20100521
  8. ACTEMRA [Suspect]
     Route: 041
     Dates: start: 20090624, end: 20090624
  9. ZOLPIDEM [Concomitant]
     Route: 048
  10. ULGUT [Concomitant]
     Route: 048
  11. ACTEMRA [Suspect]
     Route: 041
     Dates: start: 20090722, end: 20100514
  12. METHOTREXATE SODIUM [Suspect]
     Indication: RHEUMATOID ARTHRITIS
     Dosage: RHEUMATREX
     Route: 048
  13. METHOTREXATE SODIUM [Suspect]
     Route: 048
  14. ACTEMRA [Suspect]
     Indication: RHEUMATOID ARTHRITIS
     Route: 041
     Dates: start: 20090116, end: 20090116
  15. ACTEMRA [Suspect]
     Route: 041
     Dates: start: 20090220, end: 20090220
  16. LOXONIN [Concomitant]
     Route: 048
     Dates: start: 20071102, end: 20110406
  17. URSO 250 [Concomitant]
     Route: 048
     Dates: start: 20090624, end: 20110406

REACTIONS (5)
  - PRURITUS [None]
  - DIZZINESS [None]
  - GENITAL HAEMORRHAGE [None]
  - HEPATIC FUNCTION ABNORMAL [None]
  - INTERSTITIAL LUNG DISEASE [None]
